FAERS Safety Report 15719587 (Version 1)
Quarter: 2018Q4

REPORT INFORMATION
  Report Type: Spontaneous
  Country: FR (occurrence: FR)
  Receive Date: 20181213
  Receipt Date: 20181213
  Transmission Date: 20190205
  Serious: Yes (Other)
  Sender: FDA-Public Use
  Company Number: FR-009507513-1812FRA004784

PATIENT
  Age: 60 Year
  Sex: Male
  Weight: 100 kg

DRUGS (14)
  1. CUBICIN [Suspect]
     Active Substance: DAPTOMYCIN
     Indication: INFECTION
     Dosage: 2100 MG, QD
     Route: 042
     Dates: start: 20181019, end: 20181115
  2. BACTRIM [Suspect]
     Active Substance: SULFAMETHOXAZOLE\TRIMETHOPRIM
     Indication: INFECTION
     Dosage: 1600 MG
     Route: 048
     Dates: start: 20181108
  3. LEVOFLOXACIN. [Suspect]
     Active Substance: LEVOFLOXACIN
     Indication: INFECTION
     Dosage: 750 MILLIGRAM
     Dates: start: 20180829, end: 20181108
  4. ECONAZOLE NITRATE. [Concomitant]
     Active Substance: ECONAZOLE NITRATE
     Dosage: 2 DOSAGE FORM, QD
  5. PANTOPRAZOLE [Concomitant]
     Active Substance: PANTOPRAZOLE
     Dosage: 20 MILLIGRAM, QD
     Route: 048
  6. EPITOMAX [Concomitant]
     Active Substance: TOPIRAMATE
     Dosage: 300 MILLIGRAM, QD
     Route: 048
  7. DALACINE [Concomitant]
     Active Substance: CLINDAMYCIN
     Dosage: 12 GRAM, QD
     Dates: start: 20180913, end: 20181018
  8. TAZOCILLINE [Suspect]
     Active Substance: PIPERACILLIN SODIUM\TAZOBACTAM SODIUM
     Indication: INFECTION
     Dates: start: 20180913, end: 20181115
  9. URBANYL [Concomitant]
     Active Substance: CLOBAZAM
     Dosage: 40 MILLIGRAM, QD
     Route: 048
  10. LOVENOX [Concomitant]
     Active Substance: ENOXAPARIN SODIUM
     Dosage: 9000 INTERNATIONAL UNIT, QD; STRENGTH: 10 000 UI ANTI-XA/1 ML,
     Route: 058
  11. ZAMUDOL [Suspect]
     Active Substance: TRAMADOL HYDROCHLORIDE
     Indication: PRODUCT USED FOR UNKNOWN INDICATION
     Dosage: 200 MILLIGRAM, QD
     Route: 048
     Dates: end: 20181115
  12. ALEPSAL (CAFFEINE (+) PHENOBARBITAL) [Concomitant]
     Active Substance: CAFFEINE\PHENOBARBITAL
     Dosage: 200 MILLIGRAM, QD
     Route: 048
  13. LAMICTAL [Concomitant]
     Active Substance: LAMOTRIGINE
     Dosage: 1600 MG, QD
     Route: 048
  14. AERIUS (DESLORATADINE) [Concomitant]
     Active Substance: DESLORATADINE
     Dosage: 5 MILLIGRAM, QD
     Route: 048

REACTIONS (2)
  - Essential tremor [Unknown]
  - Speech disorder [Unknown]

NARRATIVE: CASE EVENT DATE: 201810
